FAERS Safety Report 23977781 (Version 2)
Quarter: 2025Q3

REPORT INFORMATION
  Report Type: Report from Study
  Country: US (occurrence: US)
  Receive Date: 20240614
  Receipt Date: 20250926
  Transmission Date: 20251020
  Serious: Yes (Other)
  Sender: ABBVIE
  Company Number: US-ABBVIE-5798168

PATIENT
  Age: 42 Year
  Sex: Female

DRUGS (1)
  1. RINVOQ [Suspect]
     Active Substance: UPADACITINIB
     Indication: Rheumatoid arthritis
     Route: 048
     Dates: start: 20230123

REACTIONS (3)
  - Knee operation [Unknown]
  - Arthralgia [Unknown]
  - Post procedural complication [Unknown]

NARRATIVE: CASE EVENT DATE: 20240505
